FAERS Safety Report 8825526 (Version 2)
Quarter: 2014Q3

REPORT INFORMATION
  Report Type: Spontaneous
  Country: US (occurrence: US)
  Receive Date: 20121004
  Receipt Date: 20140822
  Transmission Date: 20150326
  Serious: Yes (Hospitalization, Other)
  Sender: FDA-Public Use
  Company Number: US-009507513-2012SP034968

PATIENT
  Sex: Female
  Weight: 101.13 kg

DRUGS (6)
  1. HORMONAL CONTRACEPTIVES (UNSPECIFIED) [Suspect]
     Active Substance: UNSPECIFIED INGREDIENT
     Dosage: UNK
     Route: 048
     Dates: start: 1989, end: 1991
  2. NUVARING [Suspect]
     Active Substance: ETHINYL ESTRADIOL\ETONOGESTREL
     Indication: CONTRACEPTION
     Dosage: UNK
     Route: 067
     Dates: start: 20060522, end: 20080109
  3. ALEVE [Concomitant]
     Active Substance: NAPROXEN SODIUM
     Dosage: UNK, PRN
     Route: 048
  4. ORTHO EVRA [Suspect]
     Active Substance: ETHINYL ESTRADIOL\NORELGESTROMIN
     Dosage: UNK
     Route: 062
     Dates: start: 20050215, end: 200601
  5. DEPO-PROVERA [Suspect]
     Active Substance: MEDROXYPROGESTERONE ACETATE
     Dosage: UNK
     Route: 030
     Dates: start: 20020328, end: 20041124
  6. NORPLANT [Suspect]
     Active Substance: LEVONORGESTREL
     Dosage: UNK
     Route: 059

REACTIONS (26)
  - Chest pain [Recovered/Resolved]
  - Anogenital warts [Unknown]
  - Pulmonary embolism [Unknown]
  - Thrombosis [Recovered/Resolved]
  - Loop electrosurgical excision procedure [Unknown]
  - Urinary tract infection [Unknown]
  - Female sterilisation [Unknown]
  - Abortion induced [Unknown]
  - Peripheral vascular disorder [Unknown]
  - Fungal infection [Unknown]
  - Weight decreased [Unknown]
  - Deep vein thrombosis [Unknown]
  - Ovarian enlargement [Unknown]
  - Hypercholesterolaemia [Unknown]
  - Coronary artery disease [Unknown]
  - Ovarian cyst [Unknown]
  - Depression [Unknown]
  - Ventricular hypokinesia [Unknown]
  - Vaginitis bacterial [Unknown]
  - Heart rate irregular [Unknown]
  - Embolism [Unknown]
  - Acute myocardial infarction [Unknown]
  - Ovarian cyst [Unknown]
  - Hypertension [Not Recovered/Not Resolved]
  - Asthma [Unknown]
  - Ectopic pregnancy [Unknown]

NARRATIVE: CASE EVENT DATE: 2006
